FAERS Safety Report 7560438-0 (Version None)
Quarter: 2011Q2

REPORT INFORMATION
  Report Type: 
  Country: None (occurrence: None)
  Receive Date: 20110621
  Receipt Date: 20110606
  Transmission Date: 20111010
  Serious: Yes (Hospitalization)
  Sender: FDA-Public Use
  Company Number: ES-WATSON-2011-08084

PATIENT
  Age: 10 Year
  Sex: Female

DRUGS (2)
  1. ASPARAGINASE [Suspect]
     Indication: ACUTE LYMPHOCYTIC LEUKAEMIA
  2. PREDNISONE [Suspect]
     Indication: LYMPHOCYTIC LEUKAEMIA
     Route: 048

REACTIONS (1)
  - HYPERTRIGLYCERIDAEMIA [None]
